FAERS Safety Report 6148062-8 (Version None)
Quarter: 2009Q2

REPORT INFORMATION
  Report Type: 
  Country: None (occurrence: None)
  Receive Date: 20090408
  Receipt Date: 20090330
  Transmission Date: 20091009
  Serious: Yes (Death)
  Sender: FDA-Public Use
  Company Number: B0557977A

PATIENT
  Sex: Male

DRUGS (7)
  1. ALKERAN [Suspect]
     Indication: STEM CELL TRANSPLANT
     Dosage: 90MG PER DAY
     Route: 042
     Dates: start: 20030624, end: 20030626
  2. NASEA [Concomitant]
     Indication: PROPHYLAXIS OF NAUSEA AND VOMITING
     Dosage: .3MG PER DAY
     Route: 042
     Dates: start: 20030624, end: 20030626
  3. URSO 250 [Concomitant]
     Dosage: 300MG PER DAY
     Route: 065
     Dates: start: 20030625, end: 20030707
  4. GASTER D [Concomitant]
     Dosage: 20MG PER DAY
     Route: 048
     Dates: start: 20030625, end: 20030706
  5. ITRIZOLE [Concomitant]
     Dosage: 200MG PER DAY
     Route: 048
     Dates: start: 20030625, end: 20030706
  6. BAKTAR [Concomitant]
     Route: 048
     Dates: start: 20030625, end: 20030629
  7. GRAN [Concomitant]
     Dosage: 300MCG PER DAY
     Route: 065
     Dates: start: 20030703, end: 20030707

REACTIONS (8)
  - CHOKING SENSATION [None]
  - GRANULOCYTE COUNT DECREASED [None]
  - HAEMOGLOBIN DECREASED [None]
  - HYPOXIA [None]
  - MALAISE [None]
  - PLATELET COUNT DECREASED [None]
  - SEPSIS [None]
  - WHITE BLOOD CELL COUNT DECREASED [None]
